FAERS Safety Report 7598433-8 (Version None)
Quarter: 2011Q3

REPORT INFORMATION
  Report Type: 
  Country: None (occurrence: None)
  Receive Date: 20110708
  Receipt Date: 20110705
  Transmission Date: 20111222
  Serious: Yes (Other)
  Sender: FDA-Public Use
  Company Number: DE-MERCK-1106DEU00058

PATIENT
  Age: 34 Year
  Sex: Female

DRUGS (1)
  1. IVEMEND [Suspect]
     Indication: PROPHYLAXIS OF NAUSEA AND VOMITING
     Route: 042
     Dates: start: 20110609, end: 20110609

REACTIONS (5)
  - LOCAL SWELLING [None]
  - BACK PAIN [None]
  - ERYTHEMA [None]
  - DYSPNOEA [None]
  - SWELLING FACE [None]
